FAERS Safety Report 18813977 (Version 1)
Quarter: 2021Q1

REPORT INFORMATION
  Report Type: Spontaneous
  Country: US (occurrence: US)
  Receive Date: 20210201
  Receipt Date: 20210201
  Transmission Date: 20210419
  Serious: No
  Sender: FDA-Public Use
  Company Number: US-AUROBINDO-AUR-APL-2020-028931

PATIENT
  Sex: Female

DRUGS (2)
  1. DULOXETINE DELAYED?RELEASE CAPSULES USP 20 MG [Suspect]
     Active Substance: DULOXETINE
     Indication: ANXIETY
     Dosage: 2?20MG, ONCE A DAY (LIGHT GREEN X 01)
     Route: 065
  2. DULOXETINE DELAYED?RELEASE CAPSULES USP 20 MG [Suspect]
     Active Substance: DULOXETINE
     Dosage: 20MG?40MG (ABOUT 3 DAYS AGO)
     Route: 065

REACTIONS (2)
  - Wrong technique in product usage process [Unknown]
  - Dyspepsia [Unknown]
